APPROVED DRUG PRODUCT: FEBUXOSTAT
Active Ingredient: FEBUXOSTAT
Strength: 40MG
Dosage Form/Route: TABLET;ORAL
Application: A205443 | Product #001 | TE Code: AB
Applicant: ZYDUS LIFESCIENCES LTD
Approved: Jan 9, 2023 | RLD: No | RS: No | Type: RX